FAERS Safety Report 18130262 (Version 1)
Quarter: 2020Q3

REPORT INFORMATION
  Report Type: Spontaneous
  Country: US (occurrence: US)
  Receive Date: 20200810
  Receipt Date: 20200810
  Transmission Date: 20201103
  Serious: Yes (Death, Hospitalization, Other)
  Sender: FDA-Public Use
  Company Number: US-ALEMBIC PHARMACUETICALS LIMITED-2020SCAL000320

PATIENT

DRUGS (3)
  1. METRONIDAZOLE. [Suspect]
     Active Substance: METRONIDAZOLE
     Indication: PNEUMONIA ASPIRATION
     Dosage: 500 MILLIGRAM, QID
  2. METRONIDAZOLE. [Suspect]
     Active Substance: METRONIDAZOLE
     Indication: ENTERITIS
     Dosage: UNCERTAIN DOSAGE OF METRONIDAZOLE
  3. AMOXICILLIN [AMOXICILLIN SODIUM] [Concomitant]
     Active Substance: AMOXICILLIN SODIUM
     Indication: PNEUMONIA ASPIRATION
     Dosage: UNK

REACTIONS (6)
  - Gait disturbance [Fatal]
  - Apraxia [Fatal]
  - Product prescribing issue [Unknown]
  - Mental status changes [Fatal]
  - Toxic encephalopathy [Fatal]
  - Depressed level of consciousness [Fatal]
